FAERS Safety Report 8563241-8 (Version None)
Quarter: 2012Q3

REPORT INFORMATION
  Report Type: 
  Country: None (occurrence: None)
  Receive Date: 20120802
  Receipt Date: 20120727
  Transmission Date: 20120928
  Serious: No
  Sender: FDA-Public Use
  Company Number: US-AMGEN-USASP2012041066

PATIENT
  Sex: Female
  Weight: 81.633 kg

DRUGS (5)
  1. FOLIC ACID [Concomitant]
     Dosage: 1 MG, QD
     Route: 048
  2. ATENOLOL [Concomitant]
     Dosage: 100 MG, QD
     Route: 048
  3. ENBREL [Suspect]
     Indication: RHEUMATOID ARTHRITIS
     Dosage: 50 MG, QWK
     Route: 058
     Dates: start: 20081001
  4. BENICAR [Concomitant]
     Dosage: 20 TO 12.5 MG, QD
  5. METHOTREXATE [Concomitant]
     Indication: RHEUMATOID ARTHRITIS
     Route: 048

REACTIONS (2)
  - INJECTION SITE REACTION [None]
  - INJECTION SITE PRURITUS [None]
